FAERS Safety Report 9288380 (Version 6)
Quarter: 2014Q1

REPORT INFORMATION
  Report Type: Spontaneous
  Country: US (occurrence: US)
  Receive Date: 20130514
  Receipt Date: 20140108
  Transmission Date: 20141002
  Serious: Yes (Hospitalization, Disabling, Other)
  Sender: FDA-Public Use
  Company Number: US-009507513-1305USA005526

PATIENT
  Sex: Female
  Weight: 96.6 kg

DRUGS (6)
  1. FOSAMAX [Suspect]
     Indication: OSTEOPENIA
     Dosage: 10 MG, QD
     Route: 048
     Dates: end: 20001020
  2. FOSAMAX [Suspect]
     Dosage: 70 MG, QW
     Route: 048
     Dates: start: 20001020, end: 20080206
  3. ALENDRONATE SODIUM [Suspect]
     Indication: OSTEOPENIA
     Dosage: 70 MG, UNK
     Route: 048
     Dates: start: 20080206, end: 20110627
  4. CALCIUM (UNSPECIFIED) [Concomitant]
     Dosage: 1000 MG, QD
     Dates: start: 1998
  5. VITAMIN D (UNSPECIFIED) [Concomitant]
     Dosage: 800 IU, QD
     Dates: start: 1998
  6. VITAMINS (UNSPECIFIED) [Concomitant]
     Dosage: 2000 IU, QD
     Dates: start: 1998

REACTIONS (29)
  - Femur fracture [Unknown]
  - Open reduction of fracture [Unknown]
  - Femur fracture [Not Recovered/Not Resolved]
  - Intramedullary rod insertion [Unknown]
  - Fracture nonunion [Unknown]
  - Intramedullary rod insertion [Unknown]
  - Open reduction of fracture [Unknown]
  - Open reduction of fracture [Unknown]
  - Open reduction of fracture [Unknown]
  - Bone graft [Unknown]
  - Low turnover osteopathy [Not Recovered/Not Resolved]
  - Device breakage [Unknown]
  - Femur fracture [Unknown]
  - Fracture delayed union [Not Recovered/Not Resolved]
  - Ankle fracture [Unknown]
  - Hypothyroidism [Unknown]
  - Hypercholesterolaemia [Unknown]
  - Adverse event [Unknown]
  - Anaemia postoperative [Unknown]
  - Hypertension [Unknown]
  - Hysterectomy [Unknown]
  - Rhinoplasty [Unknown]
  - Anaemia postoperative [Unknown]
  - Prealbumin decreased [Unknown]
  - Blood albumin decreased [Unknown]
  - Osteoporosis [Unknown]
  - Bursitis [Unknown]
  - Hepatitis [Unknown]
  - Acrochordon [Unknown]
